FAERS Safety Report 5361702-6 (Version None)
Quarter: 2007Q2

REPORT INFORMATION
  Report Type: 
  Country: None (occurrence: None)
  Receive Date: 20070530
  Receipt Date: 20070314
  Transmission Date: 20071010
  Serious: No
  Sender: FDA-Public Use
  Company Number: 2007PV031737

PATIENT
  Age: 57 Year
  Sex: Male
  Weight: 108.8633 kg

DRUGS (5)
  1. BYETTA [Suspect]
     Indication: WEIGHT CONTROL
     Dosage: 10;5;10;5 MCG;BID;SC
     Route: 058
     Dates: start: 20060101, end: 20060101
  2. BYETTA [Suspect]
     Indication: WEIGHT CONTROL
     Dosage: 10;5;10;5 MCG;BID;SC
     Route: 058
     Dates: start: 20060101, end: 20060101
  3. BYETTA [Suspect]
     Indication: WEIGHT CONTROL
     Dosage: 10;5;10;5 MCG;BID;SC
     Route: 058
     Dates: start: 20070101, end: 20070201
  4. BYETTA [Suspect]
     Indication: WEIGHT CONTROL
     Dosage: 10;5;10;5 MCG;BID;SC
     Route: 058
     Dates: start: 20070201
  5. AVANDAMET [Concomitant]

REACTIONS (6)
  - CHILLS [None]
  - HICCUPS [None]
  - NAUSEA [None]
  - VOMITING [None]
  - WEIGHT DECREASED [None]
  - WEIGHT INCREASED [None]
